FAERS Safety Report 21785755 (Version 1)
Quarter: 2022Q4

REPORT INFORMATION
  Report Type: Spontaneous
  Country: US (occurrence: US)
  Receive Date: 20221227
  Receipt Date: 20221227
  Transmission Date: 20230113
  Serious: Yes (Hospitalization, Other)
  Sender: FDA-Public Use
  Company Number: US-JNJFOC-20221231261

PATIENT

DRUGS (1)
  1. IMBRUVICA [Suspect]
     Active Substance: IBRUTINIB
     Indication: Lymphoma
     Route: 048

REACTIONS (5)
  - Drug ineffective [Unknown]
  - Pyrexia [Unknown]
  - Adverse drug reaction [Unknown]
  - Biopsy [Unknown]
  - Cardiac disorder [Unknown]
